FAERS Safety Report 10030071 (Version 2)
Quarter: 2014Q1

REPORT INFORMATION
  Report Type: Spontaneous
  Country: US (occurrence: US)
  Receive Date: 20140323
  Receipt Date: 20140323
  Transmission Date: 20141002
  Serious: No
  Sender: FDA-Public Use
  Company Number: US-ALLERGAN-1304225US

PATIENT
  Age: 42 Year
  Sex: Female

DRUGS (4)
  1. LATISSE 0.03% [Suspect]
     Indication: GROWTH OF EYELASHES
     Dosage: 2 GTT, QHS
     Route: 061
     Dates: start: 20100913
  2. LATISSE 0.03% [Suspect]
     Dosage: UNK UNK, QHS
  3. PATADAY [Concomitant]
     Indication: HYPERSENSITIVITY
  4. FACE CREAMS [Concomitant]
     Indication: PRODUCT USED FOR UNKNOWN INDICATION

REACTIONS (6)
  - Eyelash discolouration [Unknown]
  - Trichorrhexis [Unknown]
  - Madarosis [Unknown]
  - Hair growth abnormal [Unknown]
  - Hair growth abnormal [Unknown]
  - Madarosis [Unknown]
